FAERS Safety Report 22302513 (Version 1)
Quarter: 2023Q2

REPORT INFORMATION
  Report Type: Report from Study
  Country: US (occurrence: US)
  Receive Date: 20230510
  Receipt Date: 20230510
  Transmission Date: 20230721
  Serious: Yes (Hospitalization)
  Sender: FDA-Public Use
  Company Number: US-SECURA BIO, INC.-2023-SECUR-US000049

PATIENT

DRUGS (5)
  1. DUVELISIB [Suspect]
     Active Substance: DUVELISIB
     Indication: Peripheral T-cell lymphoma unspecified
     Dosage: 15 MG TOTAL DOSE ADMINISTERED THIS COURSE (270 MG)
     Route: 065
     Dates: start: 20230321, end: 20230330
  2. CYCLOPHOSPHAMIDE [Suspect]
     Active Substance: CYCLOPHOSPHAMIDE
     Indication: Peripheral T-cell lymphoma unspecified
     Dosage: 1100 MG- TOTAL DOSE ADMINISTERED THIS COURSE
     Route: 065
     Dates: start: 20230321, end: 20230321
  3. DOXORUBICIN [Suspect]
     Active Substance: DOXORUBICIN
     Indication: Peripheral T-cell lymphoma unspecified
     Dosage: 70 MG- TOTAL DOSE ADMINISTERED THIS COURSE
     Route: 065
     Dates: start: 20230321, end: 20230321
  4. PREDNISONE [Suspect]
     Active Substance: PREDNISONE
     Indication: Peripheral T-cell lymphoma unspecified
     Dosage: 500 MG- TOTAL DOSE ADMINISTERED THIS COURSE
     Route: 065
     Dates: start: 20230321, end: 20230325
  5. VINCRISTINE [Suspect]
     Active Substance: VINCRISTINE
     Indication: Peripheral T-cell lymphoma unspecified
     Dosage: 2 MG- TOTAL DOSE ADMINISTERED THIS COURSE
     Route: 065
     Dates: start: 20230321, end: 20230321

REACTIONS (2)
  - Febrile neutropenia [Recovering/Resolving]
  - Platelet count decreased [Recovering/Resolving]

NARRATIVE: CASE EVENT DATE: 20230330
